FAERS Safety Report 9506329 (Version 1)
Quarter: 2013Q1

REPORT INFORMATION
  Report Type: Spontaneous
  Country: US (occurrence: None)
  Receive Date: 20130301
  Receipt Date: 20130301
  Transmission Date: 20140127
  Serious: Yes (Hospitalization)
  Sender: FDA-Public Use
  Company Number: RB-45501-2012

PATIENT
  Age: 30 Year
  Sex: Male

DRUGS (3)
  1. SUBOXONE [Suspect]
     Indication: DRUG DEPENDENCE
     Dosage: (DOSING DETAILS UNKNOWN SUBLINGUAL)
     Route: 060
     Dates: end: 2005
  2. GABAPENTIN [Suspect]
     Indication: ANXIETY
     Dosage: (DOSING DETAILS UNKNOWN ORAL)
     Route: 048
  3. UNSPECIFIED INGREDIENT [Suspect]
     Indication: DEPRESSION
     Dosage: (DOSING DETAILS UNKNOWN ORAL)
     Route: 048

REACTIONS (3)
  - Amnesia [None]
  - Road traffic accident [None]
  - Depression [None]
